FAERS Safety Report 5057339-9 (Version None)
Quarter: 2006Q3

REPORT INFORMATION
  Report Type: 
  Country: None (occurrence: None)
  Receive Date: 20060721
  Receipt Date: 20050819
  Transmission Date: 20061208
  Serious: No
  Sender: FDA-Public Use
  Company Number: US-GLAXOSMITHKLINE-A0570965A

PATIENT
  Age: 67 Year
  Sex: Female

DRUGS (13)
  1. AVANDIA [Suspect]
     Dosage: 4MG PER DAY
     Route: 048
     Dates: start: 20050526, end: 20050601
  2. METFORMIN [Concomitant]
  3. COUMADIN [Concomitant]
  4. COZAAR [Concomitant]
  5. METOPROLOL [Concomitant]
  6. IMDUR [Concomitant]
  7. XALATAN [Concomitant]
  8. MS CONTIN [Concomitant]
  9. MORPHINE [Concomitant]
  10. ATIVAN [Concomitant]
  11. MECLIZINE [Concomitant]
  12. ECOTRIN [Concomitant]
  13. REGLAN [Concomitant]

REACTIONS (2)
  - PRURITUS [None]
  - RASH [None]
